FAERS Safety Report 5405450-2 (Version None)
Quarter: 2007Q3

REPORT INFORMATION
  Report Type: 
  Country: None (occurrence: None)
  Receive Date: 20070803
  Receipt Date: 20070723
  Transmission Date: 20080115
  Serious: Yes (Hospitalization, Other)
  Sender: FDA-Public Use
  Company Number: US-PFIZER INC-2007035327

PATIENT
  Sex: Female

DRUGS (4)
  1. CHANTIX [Suspect]
     Indication: SMOKING CESSATION THERAPY
     Dates: start: 20070305, end: 20070310
  2. NICOTINE [Suspect]
  3. CAFFEINE [Suspect]
  4. EFFEXOR [Concomitant]
     Indication: ANXIETY
     Dosage: DAILY DOSE:150MG

REACTIONS (6)
  - APHASIA [None]
  - CONVULSION [None]
  - DISABILITY [None]
  - DRUG WITHDRAWAL SYNDROME [None]
  - HEADACHE [None]
  - IMPAIRED WORK ABILITY [None]
